FAERS Safety Report 23836785 (Version 1)
Quarter: 2024Q2

REPORT INFORMATION
  Report Type: Spontaneous
  Country: CN (occurrence: CN)
  Receive Date: 20240509
  Receipt Date: 20240509
  Transmission Date: 20240716
  Serious: Yes (Hospitalization, Other)
  Sender: FDA-Public Use
  Company Number: CN-FreseniusKabi-FK202406988

PATIENT
  Age: 62 Year
  Sex: Male
  Weight: 42.0 kg

DRUGS (5)
  1. KABIVEN [Suspect]
     Active Substance: ALANINE\ARGININE\ASPARTIC ACID\CALCIUM CHLORIDE\DEXTROSE MONOHYDRATE\GLUTAMIC ACID\GLYCINE\HISTIDINE
     Indication: Parenteral nutrition
     Dosage: FORM OF ADMIN: EMULSION FOR INJECTION?ROUTE OF ADMIN: INTRAVENOUS DRIP
     Dates: start: 20240408, end: 20240422
  2. Composite Potassium Hydrogen Phosphate Injection [Concomitant]
     Indication: Nutritional supplementation
     Dosage: FOA: INJECTION?ROUTE: INTRAVENOUS
     Dates: start: 20240408, end: 20240418
  3. POTASSIUM CHLORIDE [Concomitant]
     Active Substance: POTASSIUM CHLORIDE
     Indication: Nutritional supplementation
     Dosage: FOA: INJECTION?ROUTE: INTRAVENOUS DRIP
     Dates: start: 20240408, end: 20240422
  4. VITAMINS [Concomitant]
     Active Substance: VITAMINS
     Indication: Nutritional supplementation
     Dosage: FOA: INJECTION
     Dates: start: 20240408, end: 20240422
  5. DEXTROSE [Concomitant]
     Active Substance: DEXTROSE\DEXTROSE MONOHYDRATE
     Indication: Nutritional supplementation
     Dosage: FOA: INJECTION?ROUTE: INTRAVENOUS
     Dates: start: 20240408, end: 20240422

REACTIONS (1)
  - Hepatic failure [Recovering/Resolving]

NARRATIVE: CASE EVENT DATE: 20240413
